FAERS Safety Report 7414457-5 (Version None)
Quarter: 2011Q2

REPORT INFORMATION
  Report Type: 
  Country: None (occurrence: None)
  Receive Date: 20110414
  Receipt Date: 20110322
  Transmission Date: 20111010
  Serious: Yes (Hospitalization)
  Sender: FDA-Public Use
  Company Number: US-BAYER-201037734NA

PATIENT
  Age: 45 Year
  Sex: Female

DRUGS (37)
  1. IBUPROFEN [Concomitant]
     Dosage: 800 MG, UNK
     Dates: start: 20050311
  2. NAPROXEN [Concomitant]
     Dosage: 500 MG, UNK
     Dates: start: 20090911
  3. ENALAPRIL MALEATE AND HYDROCHLOROTHIAZIDE [Concomitant]
     Dosage: UNK
     Dates: start: 20061002
  4. ENALAPRIL MALEATE [Concomitant]
     Dosage: 20 MG, UNK
     Dates: start: 20050831
  5. COREG [Concomitant]
     Dosage: 6.25 MG, UNK
  6. YASMIN [Suspect]
     Indication: ACNE
     Dosage: UNK
     Dates: start: 20050101, end: 20060101
  7. COZAAR [Concomitant]
     Dosage: 100 MG, UNK
     Dates: start: 20041105
  8. COZAAR [Concomitant]
     Dosage: 100 MG, UNK
     Dates: start: 20050104
  9. YAZ [Suspect]
     Indication: ACNE
     Dosage: UNK
     Dates: start: 20050101, end: 20060101
  10. IBUPROFEN [Concomitant]
     Dosage: 800 MG, UNK
     Dates: start: 20050201
  11. KETOPROFEN [Concomitant]
     Dosage: 75 MG, UNK
     Dates: start: 20070201
  12. SULINDAC [Concomitant]
     Dosage: 200 MG, UNK
     Dates: start: 20081031
  13. ENALAPRIL MALEATE AND HYDROCHLOROTHIAZIDE [Concomitant]
     Dosage: UNK
     Dates: start: 20070101
  14. ENALAPRIL MALEATE AND HYDROCHLOROTHIAZIDE [Concomitant]
     Dosage: UNK
     Dates: start: 20070702
  15. NITROGLYCERIN [Concomitant]
     Dosage: 0.4 MG, UNK
  16. ISOSORBIDE DINITRATE [Concomitant]
  17. METOPROLOL TARTRATE [Concomitant]
     Dosage: 50 MG, UNK
  18. KETOPROFEN [Concomitant]
     Dosage: 75 MG, UNK
     Dates: start: 20051214
  19. KETOPROFEN [Concomitant]
     Dosage: 75 MG, UNK
     Dates: start: 20060106
  20. SULINDAC [Concomitant]
     Dosage: 200 MG, UNK
     Dates: start: 20090416
  21. ENALAPRIL MALEATE [Concomitant]
     Dosage: 20 MG, UNK
     Dates: start: 20060308
  22. HYDROCHLOROTHIAZIDE W/MOEXIPRIL HYDROCHLORIDE [Concomitant]
     Dosage: UNK
     Dates: start: 20050112
  23. HYDROCHLOROTHIAZIDE W/MOEXIPRIL HYDROCHLORIDE [Concomitant]
     Dosage: UNK
     Dates: start: 20050506
  24. COZAAR [Concomitant]
     Dosage: 100 MG, UNK
     Dates: start: 20041207
  25. NAPROXEN [Concomitant]
     Dosage: 375 MG, UNK
     Dates: start: 20070201
  26. KETOPROFEN [Concomitant]
     Dosage: 75 MG, UNK
     Dates: start: 20060308
  27. ENALAPRIL MALEATE [Concomitant]
     Dosage: 20 MG, UNK
     Dates: start: 20051012
  28. ENALAPRIL MALEATE AND HYDROCHLOROTHIAZIDE [Concomitant]
     Dosage: UNK
     Dates: start: 20051214
  29. ENALAPRIL MALEATE AND HYDROCHLOROTHIAZIDE [Concomitant]
     Dosage: UNK
     Dates: start: 20060801
  30. TOPROL-XL [Concomitant]
     Dosage: 200 MG, UNK
  31. IBUPROFEN [Concomitant]
     Dosage: 400 MG, UNK
     Dates: start: 20050210
  32. IBUPROFEN [Concomitant]
     Dosage: 800 MG, UNK
     Dates: start: 20050401
  33. CLONIDINE [Concomitant]
     Dosage: 0.3 MG, UNK
  34. OCELLA [Suspect]
     Indication: ACNE
     Dosage: UNK
     Dates: start: 20050101, end: 20060101
  35. ENALAPRIL MALEATE [Concomitant]
     Dosage: 20 MG, UNK
     Dates: start: 20051116
  36. ENALAPRIL MALEATE AND HYDROCHLOROTHIAZIDE [Concomitant]
     Dosage: UNK
     Dates: start: 20060508
  37. MONOHYDRATE [Concomitant]
     Dosage: 30 MG, UNK

REACTIONS (1)
  - MYOCARDIAL INFARCTION [None]
